FAERS Safety Report 22955917 (Version 2)
Quarter: 2023Q4

REPORT INFORMATION
  Report Type: Spontaneous
  Country: NL (occurrence: NL)
  Receive Date: 20230919
  Receipt Date: 20231109
  Transmission Date: 20240110
  Serious: Yes (Other)
  Sender: FDA-Public Use
  Company Number: NL-LRB-00904620

PATIENT
  Age: 71 Year
  Sex: Female
  Weight: 53 kg

DRUGS (3)
  1. BACLOFEN [Suspect]
     Active Substance: BACLOFEN
     Indication: Muscle spasms
     Dosage: 15 MILLIGRAM, FOUR TIMES/DAY (4 X 15 MG)
     Route: 065
     Dates: start: 20230301
  2. GABAPENTIN [Suspect]
     Active Substance: GABAPENTIN
     Indication: Neuropathy peripheral
     Dosage: 400 MILLIGRAM, 3 TIMES A DAY (3 X 400M)
     Route: 065
     Dates: start: 20230702
  3. PFIZER-BIONTECH COVID-19 VACCINE [Suspect]
     Active Substance: TOZINAMERAN
     Indication: Product used for unknown indication
     Dosage: INJECTIE
     Route: 065
     Dates: start: 20210301

REACTIONS (3)
  - Neuropathy peripheral [Not Recovered/Not Resolved]
  - Condition aggravated [Not Recovered/Not Resolved]
  - Unevaluable event [Not Recovered/Not Resolved]
